FAERS Safety Report 21170472 (Version 2)
Quarter: 2022Q3

REPORT INFORMATION
  Report Type: Report from Study
  Country: US (occurrence: US)
  Receive Date: 20220804
  Receipt Date: 20220816
  Transmission Date: 20221027
  Serious: Yes (Hospitalization, Other)
  Sender: FDA-Public Use
  Company Number: US-GBT-014813

PATIENT
  Age: 28 Year
  Sex: Female

DRUGS (13)
  1. OXBRYTA [Suspect]
     Active Substance: VOXELOTOR
     Indication: Sickle cell disease
     Dosage: ON AN UNKNOWN DATE IN DEC-2020, THE PATIENT RECEIVED THE LAST DOSE OF OXBRYTA PRIOR TO EVENT ONSET.
     Dates: start: 20200401, end: 202012
  2. OXBRYTA [Suspect]
     Active Substance: VOXELOTOR
     Indication: Sickle cell disease
     Dates: start: 202103
  3. Brompheniramine-dextromethorphan-pseudoephedrine [Concomitant]
     Indication: Bronchitis
     Route: 048
     Dates: start: 20200103, end: 20200113
  4. COLACE [Concomitant]
     Active Substance: DOCUSATE SODIUM
     Dosage: TIME INTERVAL: 0.33333333 DAYS
     Route: 048
     Dates: start: 20210219, end: 20210301
  5. COLACE [Concomitant]
     Active Substance: DOCUSATE SODIUM
     Dosage: TIME INTERVAL: 0.33333333 DAYS
     Route: 048
     Dates: start: 20210402
  6. TYLENOL EXTRA STRENGTH [Concomitant]
     Active Substance: ACETAMINOPHEN
     Indication: Sickle cell disease
     Route: 048
     Dates: start: 20180831, end: 20210412
  7. VENTOLIN HFA [Concomitant]
     Active Substance: ALBUTEROL SULFATE
     Dosage: 90 MCG/ACTUATION INHALER
     Route: 055
     Dates: start: 20200103
  8. AUGMENTIN [Concomitant]
     Active Substance: AMOXICILLIN\CLAVULANATE POTASSIUM
     Dosage: 875-125 MG
     Route: 048
     Dates: start: 20210219, end: 20210227
  9. HYDROXYUREA [Concomitant]
     Active Substance: HYDROXYUREA
     Indication: Skin ulcer
  10. cholecalciferol, vitamin D3 [Concomitant]
     Indication: Sickle cell disease
     Route: 048
     Dates: start: 20191017, end: 20210707
  11. DEXTROMETHORPHAN [Concomitant]
     Active Substance: DEXTROMETHORPHAN
     Route: 048
     Dates: start: 20201220, end: 20210129
  12. FOLIC ACID [Concomitant]
     Active Substance: FOLIC ACID
     Indication: Sickle cell disease
     Route: 048
     Dates: start: 20160830
  13. VOLTAREN [Concomitant]
     Active Substance: DICLOFENAC SODIUM
     Route: 048
     Dates: start: 20210224, end: 20210325

REACTIONS (3)
  - Sickle cell anaemia with crisis [Recovered/Resolved]
  - Pelvic inflammatory disease [Recovered/Resolved]
  - COVID-19 [Recovered/Resolved]

NARRATIVE: CASE EVENT DATE: 20201228
